FAERS Safety Report 12176540 (Version 1)
Quarter: 2016Q1

REPORT INFORMATION
  Report Type: Spontaneous
  Country: US (occurrence: US)
  Receive Date: 20160314
  Receipt Date: 20160314
  Transmission Date: 20160526
  Serious: No
  Sender: FDA-Public Use
  Company Number: US-AKORN PHARMACEUTICALS-2015AKN00427

PATIENT
  Sex: Male
  Weight: 68.27 kg

DRUGS (1)
  1. MYORISAN [Suspect]
     Active Substance: ISOTRETINOIN
     Indication: ACNE
     Dosage: 40 MG, 1X/DAY
     Route: 048
     Dates: start: 201504

REACTIONS (10)
  - Oropharyngeal pain [Recovering/Resolving]
  - Skin exfoliation [Recovering/Resolving]
  - Chapped lips [Recovering/Resolving]
  - Nasopharyngitis [Recovering/Resolving]
  - Viral infection [Recovering/Resolving]
  - Dry skin [Recovering/Resolving]
  - Dysphagia [Recovering/Resolving]
  - Alopecia [Recovering/Resolving]
  - Erythema [Recovering/Resolving]
  - Scar [Recovering/Resolving]

NARRATIVE: CASE EVENT DATE: 2015
